FAERS Safety Report 7440639-2 (Version None)
Quarter: 2011Q2

REPORT INFORMATION
  Report Type: 
  Country: None (occurrence: None)
  Receive Date: 20110427
  Receipt Date: 20110421
  Transmission Date: 20111010
  Serious: Yes (Hospitalization, Other)
  Sender: FDA-Public Use
  Company Number: US-PFIZER INC-2011087263

PATIENT
  Sex: Female

DRUGS (6)
  1. HUMULIN N [Concomitant]
     Dosage: 35 IU, 1X/DAY, EVERY MORNING
  2. ZANTAC [Concomitant]
     Dosage: 150 MG, 2X/DAY
  3. LYRICA [Suspect]
     Dosage: UNK
  4. REGULAR INSULIN [Concomitant]
     Dosage: 10 IU, 4X/DAY
  5. SIMVASTATIN [Concomitant]
     Dosage: 80 MG, 1X/DAY, AT BEDTIME
  6. OXYCODONE HCL [Concomitant]
     Dosage: 7.5/325 MG

REACTIONS (11)
  - MENTAL STATUS CHANGES [None]
  - SEASONAL ALLERGY [None]
  - FATIGUE [None]
  - RENAL FAILURE CHRONIC [None]
  - HYPOTENSION [None]
  - ASTHENIA [None]
  - MYOCARDIAL INFARCTION [None]
  - TYPE 2 DIABETES MELLITUS [None]
  - TOE AMPUTATION [None]
  - MYOCLONUS [None]
  - CORONARY ARTERY DISEASE [None]
